FAERS Safety Report 17507942 (Version 5)
Quarter: 2022Q1

REPORT INFORMATION
  Report Type: Report from Study
  Country: IL (occurrence: IL)
  Receive Date: 20200306
  Receipt Date: 20220211
  Transmission Date: 20220423
  Serious: Yes (Other)
  Sender: FDA-Public Use
  Company Number: PHHY2019IL035866

PATIENT
  Age: 2 Year
  Sex: Female
  Weight: 11 kg

DRUGS (12)
  1. TRAMETINIB [Suspect]
     Active Substance: TRAMETINIB
     Indication: Neurofibroma
     Dosage: 4.2 ML, QD
     Route: 048
     Dates: start: 20180821
  2. TRAMETINIB [Suspect]
     Active Substance: TRAMETINIB
     Dosage: 4.2 ML, QD
     Route: 048
     Dates: start: 20190101
  3. TRAMETINIB [Suspect]
     Active Substance: TRAMETINIB
     Dosage: 4.2 ML, QD
     Route: 048
     Dates: start: 20190209
  4. TRAMETINIB [Suspect]
     Active Substance: TRAMETINIB
     Dosage: 4.3 ML, QD (0.025MG/KG/DAY)
     Route: 048
     Dates: start: 20190219
  5. TRAMETINIB [Suspect]
     Active Substance: TRAMETINIB
     Dosage: 4.3 ML, QD (0.025MG/KG/DAY)
     Route: 048
     Dates: start: 20190304
  6. TRAMETINIB [Suspect]
     Active Substance: TRAMETINIB
     Dosage: 0.032 MG/KG, QD
     Route: 065
  7. TRAMETINIB [Suspect]
     Active Substance: TRAMETINIB
     Dosage: 6 ML, QD
     Route: 065
  8. TRAMETINIB [Suspect]
     Active Substance: TRAMETINIB
     Dosage: 3 ML, QD
     Route: 048
     Dates: end: 20191211
  9. TRAMETINIB [Suspect]
     Active Substance: TRAMETINIB
     Dosage: 7 ML, QD
     Route: 065
  10. PILOCARPINE [Concomitant]
     Active Substance: PILOCARPINE
     Indication: Developmental glaucoma
     Route: 065
  11. AZARGA [Concomitant]
     Active Substance: BRINZOLAMIDE\TIMOLOL MALEATE
     Indication: Developmental glaucoma
     Route: 065
  12. XALATAN [Concomitant]
     Active Substance: LATANOPROST
     Indication: Developmental glaucoma
     Route: 065

REACTIONS (23)
  - Skin toxicity [Recovering/Resolving]
  - Skin infection [Recovering/Resolving]
  - Rash erythematous [Recovering/Resolving]
  - Eczema [Recovering/Resolving]
  - Dermatitis diaper [Recovering/Resolving]
  - Iris neovascularisation [Not Recovered/Not Resolved]
  - Neurofibroma [Unknown]
  - Neoplasm progression [Unknown]
  - Paronychia [Not Recovered/Not Resolved]
  - Alopecia [Recovered/Resolved]
  - Oral pain [Unknown]
  - Cheilitis [Recovered/Resolved]
  - Pyrexia [Recovered/Resolved]
  - Pyrexia [Recovered/Resolved]
  - Hair colour changes [Recovering/Resolving]
  - Dry skin [Recovering/Resolving]
  - Palmar-plantar erythrodysaesthesia syndrome [Recovered/Resolved]
  - Mouth ulceration [Unknown]
  - Infection [Unknown]
  - Skin irritation [Unknown]
  - Erythema nodosum [Unknown]
  - Paronychia [Recovered/Resolved]
  - Dental caries [Unknown]

NARRATIVE: CASE EVENT DATE: 20181023
